FAERS Safety Report 5138346-4 (Version None)
Quarter: 2006Q4

REPORT INFORMATION
  Report Type: 
  Country: None (occurrence: None)
  Receive Date: 20061030
  Receipt Date: 20060831
  Transmission Date: 20070319
  Serious: No
  Sender: FDA-Public Use
  Company Number: US-GLAXOSMITHKLINE-A0618758A

PATIENT
  Sex: Female

DRUGS (4)
  1. ADVAIR HFA [Suspect]
     Indication: COUGH
     Dosage: 1PUFF TWICE PER DAY
     Dates: start: 20060829
  2. FLONASE [Concomitant]
  3. PRILOSEC [Concomitant]
  4. CLARITIN [Concomitant]

REACTIONS (1)
  - HEADACHE [None]
